FAERS Safety Report 9883878 (Version 3)
Quarter: 2014Q2

REPORT INFORMATION
  Report Type: Spontaneous
  Country: FR (occurrence: FR)
  Receive Date: 20140210
  Receipt Date: 20140423
  Transmission Date: 20141212
  Serious: Yes (Hospitalization)
  Sender: FDA-Public Use
  Company Number: FR-ROCHE-1340983

PATIENT
  Age: 44 Year
  Sex: Female

DRUGS (5)
  1. HERCEPTIN [Suspect]
     Indication: INVASIVE DUCTAL BREAST CARCINOMA
     Dosage: 150 MG
     Route: 041
     Dates: start: 20131213, end: 20131213
  2. NEULASTA [Suspect]
     Indication: NEUTROPENIA
     Dosage: 6 MG
     Route: 042
     Dates: start: 20131214
  3. TAXOTERE [Suspect]
     Indication: PRODUCT USED FOR UNKNOWN INDICATION
     Dosage: 650 MG / 8 ML
     Route: 041
     Dates: start: 20131213
  4. TAXOTERE [Suspect]
     Dosage: 160MG/8ML, (190 MG, 1 IN?1 CYCLICAL);
     Route: 041
  5. PARACETAMOL [Concomitant]

REACTIONS (2)
  - Chest pain [Recovered/Resolved]
  - Spinal pain [Not Recovered/Not Resolved]
